FAERS Safety Report 8789702 (Version 2)
Quarter: 2012Q4

REPORT INFORMATION
  Report Type: Spontaneous
  Country: GB (occurrence: None)
  Receive Date: 20120906
  Receipt Date: 20120907
  Transmission Date: 20130627
  Serious: Yes (Other)
  Sender: FDA-Public Use
  Company Number: 2012AP002751

PATIENT
  Age: 70 Year
  Sex: Female

DRUGS (3)
  1. ALENDRONIC ACID (ALENDRONIC ACID) [Suspect]
     Indication: OSTEOPOROSIS
     Route: 048
  2. CALCICHEW [Concomitant]
  3. NIFEDIPINE [Concomitant]

REACTIONS (3)
  - Bronchiectasis [None]
  - Choking [None]
  - Foreign body aspiration [None]
